FAERS Safety Report 8582574-2 (Version None)
Quarter: 2012Q3

REPORT INFORMATION
  Report Type: 
  Country: None (occurrence: None)
  Receive Date: 20120809
  Receipt Date: 20120801
  Transmission Date: 20120928
  Serious: Yes (Death, Other)
  Sender: FDA-Public Use
  Company Number: US-BAYER-2012-079946

PATIENT
  Age: 68 Year
  Sex: Female

DRUGS (22)
  1. PROTAMINE SULFATE [Concomitant]
     Dosage: UNK
     Dates: start: 20070125, end: 20070125
  2. SODIUM BICARBONATE [Concomitant]
     Dosage: UNK
     Dates: start: 20070125, end: 20070125
  3. RED BLOOD CELLS [Concomitant]
     Dosage: UNK
     Dates: start: 20070125, end: 20070125
  4. BUMETANIDE [Concomitant]
  5. FENTANYL [Concomitant]
     Dosage: UNK
     Dates: start: 20070125, end: 20070125
  6. MIDAZOLAM [Concomitant]
     Dosage: UNK
     Dates: start: 20070125, end: 20070125
  7. BENADRYL [Concomitant]
  8. CALCIUM CHLORIDE [Concomitant]
     Dosage: UNK
     Dates: start: 20070125, end: 20070125
  9. PLATELETS [Concomitant]
     Dosage: UNK
     Dates: start: 20070125, end: 20070125
  10. TRASYLOL [Suspect]
     Indication: CORONARY ARTERY BYPASS
     Dosage: LOADING DOSE: 200ML BOLUS FOLLOWED BY 50ML/HR
     Dates: start: 20070125, end: 20070125
  11. ISOFLURANE [Concomitant]
     Dosage: UNK
     Dates: start: 20070125, end: 20070125
  12. DOPAMINE HCL [Concomitant]
     Dosage: UNK
     Dates: start: 20070125
  13. TRASYLOL [Suspect]
     Indication: AORTIC VALVE REPLACEMENT
  14. SUCCINYLCHOLINE CHLORIDE [Concomitant]
     Dosage: UNK
     Dates: start: 20070125, end: 20070125
  15. HEPARIN [Concomitant]
     Dosage: UNK
     Dates: start: 20070125, end: 20070125
  16. MILRINONE LACTATE [Concomitant]
     Dosage: UNK
     Dates: start: 20070125
  17. TRASYLOL [Suspect]
     Indication: MITRAL VALVE REPAIR
  18. ETOMIDATE [Concomitant]
     Dosage: UNK
     Dates: start: 20070125, end: 20070125
  19. INSULIN [Concomitant]
     Dosage: UNK
     Dates: start: 20070125, end: 20070125
  20. LIDOCAINE [Concomitant]
     Dosage: UNK
     Dates: start: 20070125, end: 20070125
  21. FAMOTIDINE [Concomitant]
     Dosage: UNK
     Dates: start: 20070125, end: 20070125
  22. LEVOPHED [Concomitant]
     Dosage: UNK
     Dates: start: 20070125

REACTIONS (5)
  - DEATH [None]
  - CARDIAC FAILURE CONGESTIVE [None]
  - RENAL FAILURE [None]
  - MULTI-ORGAN FAILURE [None]
  - RENAL TUBULAR NECROSIS [None]
